FAERS Safety Report 9031280 (Version 1)
Quarter: 2013Q1

REPORT INFORMATION
  Report Type: Spontaneous
  Country: IT (occurrence: IT)
  Receive Date: 20130124
  Receipt Date: 20130124
  Transmission Date: 20140127
  Serious: Yes (Other)
  Sender: FDA-Public Use
  Company Number: IT-CELGENEUS-083-21880-11022044

PATIENT
  Sex: 0

DRUGS (6)
  1. REVLIMID [Suspect]
     Indication: PLASMA CELL MYELOMA
     Route: 048
  2. PREDNISONE [Concomitant]
     Indication: PLASMA CELL MYELOMA
     Route: 065
  3. MELPHALAN [Concomitant]
     Indication: PRODUCT USED FOR UNKNOWN INDICATION
     Route: 065
  4. BORTEZOMIB [Concomitant]
     Indication: PRODUCT USED FOR UNKNOWN INDICATION
     Route: 065
  5. DEXAMETHASONE [Concomitant]
     Indication: PRODUCT USED FOR UNKNOWN INDICATION
     Route: 065
  6. DOXORUBICIN [Concomitant]
     Indication: PRODUCT USED FOR UNKNOWN INDICATION
     Route: 065

REACTIONS (9)
  - Second primary malignancy [Unknown]
  - Neutropenia [Unknown]
  - Thrombocytopenia [Unknown]
  - Pneumonia [Unknown]
  - Rash [Unknown]
  - Embolism [Unknown]
  - Neuropathy peripheral [Unknown]
  - Infection [Unknown]
  - Gastrointestinal disorder [Unknown]
